FAERS Safety Report 8353573-0 (Version None)
Quarter: 2012Q2

REPORT INFORMATION
  Report Type: 
  Country: None (occurrence: None)
  Receive Date: 20120511
  Receipt Date: 20110617
  Transmission Date: 20120825
  Serious: No
  Sender: FDA-Public Use
  Company Number: US-GLAXOSMITHKLINE-A0931891A

PATIENT
  Age: 44 Year
  Sex: Female

DRUGS (8)
  1. LASIX [Concomitant]
  2. TOPROL-XL [Concomitant]
  3. XELODA [Concomitant]
  4. KLONOPIN [Concomitant]
  5. DIGOXIN [Concomitant]
  6. TYKERB [Suspect]
     Indication: BREAST CANCER
     Dosage: 1250MG PER DAY
     Route: 048
     Dates: start: 20110606
  7. COZAAR [Concomitant]
  8. COUMADIN [Concomitant]

REACTIONS (9)
  - DIZZINESS [None]
  - TREMOR [None]
  - DYSKINESIA [None]
  - DIARRHOEA [None]
  - NAUSEA [None]
  - PRURITUS [None]
  - TREATMENT NONCOMPLIANCE [None]
  - FATIGUE [None]
  - HYPOAESTHESIA ORAL [None]
